FAERS Safety Report 10161401 (Version 1)
Quarter: 2014Q2

REPORT INFORMATION
  Report Type: Spontaneous
  Country: US (occurrence: US)
  Receive Date: 20140509
  Receipt Date: 20140509
  Transmission Date: 20141212
  Serious: No
  Sender: FDA-Public Use
  Company Number: US-009507513-1405USA001718

PATIENT
  Age: 71 Year
  Sex: Female

DRUGS (5)
  1. ASMANEX TWISTHALER [Suspect]
     Indication: ASTHMA
     Dosage: 1 INHALATION ONCE DAILY IN THE EVENING
     Route: 055
     Dates: start: 20130920
  2. ASMANEX TWISTHALER [Suspect]
     Dosage: 1 INHALATION ONCE DAILY IN THE EVENING
     Route: 055
     Dates: start: 20140429
  3. PRAVACHOL [Concomitant]
  4. SINGULAIR [Concomitant]
  5. NASONEX [Concomitant]

REACTIONS (4)
  - Chest discomfort [Not Recovered/Not Resolved]
  - Drug dose omission [Unknown]
  - Product quality issue [Unknown]
  - Expired product administered [Unknown]
